FAERS Safety Report 23232245 (Version 1)
Quarter: 2023Q4

REPORT INFORMATION
  Report Type: Spontaneous
  Country: DE (occurrence: DE)
  Receive Date: 20231127
  Receipt Date: 20231127
  Transmission Date: 20240110
  Serious: Yes (Other)
  Sender: FDA-Public Use
  Company Number: None

PATIENT
  Age: 62 Year
  Sex: Female
  Weight: 56 kg

DRUGS (5)
  1. BELATACEPT [Suspect]
     Active Substance: BELATACEPT
     Indication: Epstein-Barr virus antigen positive
     Route: 042
     Dates: start: 201605, end: 20231020
  2. BELATACEPT [Suspect]
     Active Substance: BELATACEPT
     Indication: Renal transplant
  3. BELATACEPT [Suspect]
     Active Substance: BELATACEPT
     Indication: Chronic kidney disease
  4. MEROPENEM [Concomitant]
     Active Substance: MEROPENEM
     Indication: Urinary tract infection
     Route: 042
     Dates: start: 20231012, end: 20231016
  5. CEFTRIAXONE [Concomitant]
     Active Substance: CEFTRIAXONE\CEFTRIAXONE SODIUM
     Indication: Product used for unknown indication
     Dates: start: 20231016, end: 20231019

REACTIONS (1)
  - Central nervous system lymphoma [Recovered/Resolved with Sequelae]

NARRATIVE: CASE EVENT DATE: 20231012
